FAERS Safety Report 9335136 (Version 2)
Quarter: 2013Q3

REPORT INFORMATION
  Report Type: Spontaneous
  Country: US (occurrence: US)
  Receive Date: 20130606
  Receipt Date: 20130812
  Transmission Date: 20140515
  Serious: Yes (Death)
  Sender: FDA-Public Use
  Company Number: US-GLAXOSMITHKLINE-A1025770A

PATIENT
  Age: 50 Year
  Sex: Male
  Weight: 133.2 kg

DRUGS (16)
  1. VOTRIENT [Suspect]
     Indication: SOFT TISSUE CANCER
     Dosage: 800MG PER DAY
     Route: 048
     Dates: start: 20130504
  2. OXYCODONE [Concomitant]
  3. VITAMIN C [Concomitant]
  4. GLUCOSAMINE [Concomitant]
  5. ALPRAZOLAM [Concomitant]
  6. PROMETHAZINE [Concomitant]
  7. ONDANSETRON [Concomitant]
  8. DEXAMETHASONE [Concomitant]
  9. LORAZEPAM [Concomitant]
  10. GABAPENTIN [Concomitant]
  11. PRAVASTATIN [Concomitant]
  12. COUMADIN [Concomitant]
  13. EFFEXOR [Concomitant]
  14. LOSARTAN [Concomitant]
  15. OMEPRAZOLE [Concomitant]
  16. ASPIRIN [Concomitant]

REACTIONS (2)
  - Death [Fatal]
  - Surgery [Unknown]
